FAERS Safety Report 7437219-1 (Version None)
Quarter: 2011Q2

REPORT INFORMATION
  Report Type: 
  Country: None (occurrence: None)
  Receive Date: 20110426
  Receipt Date: 20110420
  Transmission Date: 20111010
  Serious: Yes (Other)
  Sender: FDA-Public Use
  Company Number: US-BRISTOL-MYERS SQUIBB COMPANY-15690704

PATIENT

DRUGS (1)
  1. ABILIFY [Suspect]

REACTIONS (1)
  - PARKINSON'S DISEASE [None]
